FAERS Safety Report 6360604-6 (Version None)
Quarter: 2009Q3

REPORT INFORMATION
  Report Type: 
  Country: None (occurrence: None)
  Receive Date: 20090915
  Receipt Date: 20090901
  Transmission Date: 20100115
  Serious: Yes (Other)
  Sender: FDA-Public Use
  Company Number: 1022556-2009-00213

PATIENT
  Sex: Female
  Weight: 72.5755 kg

DRUGS (10)
  1. ICY HOT NO MESS APPLICATOR [Suspect]
     Indication: ANALGESIA
     Dosage: 1 X, TOPICAL
     Route: 061
     Dates: start: 20090824
  2. ALLEGRA [Concomitant]
  3. METFORMIN [Concomitant]
  4. ZANTAC [Concomitant]
  5. OMEPRAZOLE [Concomitant]
  6. MELOXICAM [Concomitant]
  7. PRAVASTATIN [Concomitant]
  8. LISINOPRIL [Concomitant]
  9. ASPIRIN [Concomitant]
  10. VITAMINS [Concomitant]

REACTIONS (3)
  - CAUSTIC INJURY [None]
  - PRURITUS [None]
  - SKIN EXFOLIATION [None]
